FAERS Safety Report 24116193 (Version 1)
Quarter: 2024Q3

REPORT INFORMATION
  Report Type: Report from Study
  Country: RU (occurrence: None)
  Receive Date: 20240722
  Receipt Date: 20240722
  Transmission Date: 20241017
  Serious: Yes (Other)
  Sender: ASTRAZENECA
  Company Number: 2019SF56093

PATIENT
  Age: 59 Year
  Sex: Male
  Weight: 80 kg

DRUGS (6)
  1. BRILINTA [Suspect]
     Active Substance: TICAGRELOR
     Indication: Myocardial infarction
     Route: 048
     Dates: start: 20181218
  2. SUVARDIO (ROSUVASTATIN) [Concomitant]
  3. CARDIOMAGNYL (ACETYLSALICYLIC ACID + MAGNESIUM HYDROXIDE) [Concomitant]
  4. METOPROLOL [Concomitant]
     Active Substance: METOPROLOL
  5. PANANGIN (POTASSIUM ASPARTATE AND MAGNESIUM ASPARTATE) [Concomitant]
  6. TORSEMIDE [Concomitant]
     Active Substance: TORSEMIDE

REACTIONS (11)
  - Fall [Not Recovered/Not Resolved]
  - Gait inability [Not Recovered/Not Resolved]
  - Dysstasia [Not Recovered/Not Resolved]
  - Haemoglobin decreased [Not Recovered/Not Resolved]
  - Vein disorder [Not Recovered/Not Resolved]
  - Weight decreased [Not Recovered/Not Resolved]
  - Pallor [Not Recovered/Not Resolved]
  - Dizziness [Not Recovered/Not Resolved]
  - Contusion [Not Recovered/Not Resolved]
  - Abdominal distension [Not Recovered/Not Resolved]
  - Blood pressure decreased [Not Recovered/Not Resolved]
